FAERS Safety Report 10231370 (Version 1)
Quarter: 2014Q2

REPORT INFORMATION
  Report Type: Spontaneous
  Country: IT (occurrence: IT)
  Receive Date: 20140611
  Receipt Date: 20140611
  Transmission Date: 20141212
  Serious: Yes (Congenital Anomaly)
  Sender: FDA-Public Use
  Company Number: IT-EISAI INC-E2090-03311-SPO-IT

PATIENT
  Age: 34 Year
  Sex: Female
  Weight: 63 kg

DRUGS (4)
  1. ZONEGRAN [Suspect]
     Indication: EPILEPSY
     Route: 048
     Dates: start: 20080126
  2. TEGRETOL [Suspect]
     Indication: EPILEPSY
     Dosage: 1800 MG DAILY
     Route: 048
     Dates: start: 20080126
  3. FOLINA [Concomitant]
     Route: 048
     Dates: start: 20140324, end: 20140430
  4. FRISIUM [Concomitant]
     Route: 048

REACTIONS (2)
  - Cephalo-pelvic disproportion [Recovered/Resolved with Sequelae]
  - Exposure during pregnancy [Recovered/Resolved with Sequelae]
